FAERS Safety Report 4676893-X (Version None)
Quarter: 2005Q2

REPORT INFORMATION
  Report Type: 
  Country: None (occurrence: None)
  Receive Date: 20050527
  Receipt Date: 20050517
  Transmission Date: 20051028
  Serious: Yes (Hospitalization)
  Sender: FDA-Public Use
  Company Number: Q05-019

PATIENT
  Age: 74 Year
  Sex: Female
  Weight: 56.246 kg

DRUGS (2)
  1. QUADRAMET [Suspect]
     Indication: BREAST CANCER
     Dosage: 57.0 (MCI/KG)
     Dates: start: 20050217
  2. PERCOCET [Concomitant]

REACTIONS (2)
  - CONDITION AGGRAVATED [None]
  - PNEUMONIA [None]
